FAERS Safety Report 9917520 (Version 2)
Quarter: 2014Q1

REPORT INFORMATION
  Report Type: Report from Study
  Country: CA (occurrence: CA)
  Receive Date: 20140221
  Receipt Date: 20140327
  Transmission Date: 20141002
  Serious: Yes (Other)
  Sender: FDA-Public Use
  Company Number: CA-JNJFOC-20140211662

PATIENT
  Sex: Female
  Weight: 99 kg

DRUGS (2)
  1. REMICADE [Suspect]
     Indication: ANKYLOSING SPONDYLITIS
     Route: 042
     Dates: start: 201401
  2. REMICADE [Suspect]
     Indication: ANKYLOSING SPONDYLITIS
     Route: 042
     Dates: start: 20121017

REACTIONS (7)
  - Ulcerative keratitis [Recovering/Resolving]
  - Iritis [Recovering/Resolving]
  - Hepatic steatosis [Unknown]
  - Ophthalmic herpes simplex [Unknown]
  - Conjunctivitis bacterial [Recovering/Resolving]
  - Arthritis [Unknown]
  - Pyuria [Unknown]
